FAERS Safety Report 5096282-6 (Version None)
Quarter: 2006Q3

REPORT INFORMATION
  Report Type: 
  Country: None (occurrence: None)
  Receive Date: 20060905
  Receipt Date: 20060826
  Transmission Date: 20061208
  Serious: Yes (Life-Threatening)
  Sender: FDA-Public Use
  Company Number: FR-ROCHE-461403

PATIENT
  Age: 75 Year
  Sex: Male

DRUGS (3)
  1. RIVOTRIL [Suspect]
     Indication: DRUG USE FOR UNKNOWN INDICATION
     Route: 048
     Dates: start: 20060611, end: 20060611
  2. MODITEN [Suspect]
     Indication: DRUG USE FOR UNKNOWN INDICATION
     Route: 048
     Dates: start: 20060611, end: 20060611
  3. TERCIAN [Suspect]
     Indication: DRUG USE FOR UNKNOWN INDICATION
     Route: 048
     Dates: start: 20060611, end: 20060611

REACTIONS (5)
  - COMA [None]
  - CREPITATIONS [None]
  - RESPIRATORY DISTRESS [None]
  - SOMNOLENCE [None]
  - TACHYCARDIA [None]
